FAERS Safety Report 20778237 (Version 1)
Quarter: 2022Q2

REPORT INFORMATION
  Report Type: Spontaneous
  Country: US (occurrence: None)
  Receive Date: 20220502
  Receipt Date: 20220502
  Transmission Date: 20220720
  Serious: Yes (Disabling)
  Sender: FDA-Public Use
  Company Number: None

PATIENT
  Age: 67 Year
  Sex: Female
  Weight: 85.5 kg

DRUGS (6)
  1. LOSARTAN [Suspect]
     Active Substance: LOSARTAN
     Indication: Hypertension
     Dosage: OTHER QUANTITY : 1 TABLET(S);?FREQUENCY : TWICE A DAY;?
     Route: 048
     Dates: start: 20211001, end: 20220430
  2. SYNTHROID [Concomitant]
     Active Substance: LEVOTHYROXINE SODIUM
  3. CARVEDILOL [Concomitant]
     Active Substance: CARVEDILOL
  4. KLONOPIN [Concomitant]
     Active Substance: CLONAZEPAM
  5. PAROXETINE [Concomitant]
     Active Substance: PAROXETINE
  6. VITAMINS [Concomitant]
     Active Substance: VITAMINS

REACTIONS (9)
  - Confusional state [None]
  - Pain in extremity [None]
  - Fatigue [None]
  - Dyspepsia [None]
  - Rash [None]
  - Depression [None]
  - Choking sensation [None]
  - Pharyngeal swelling [None]
  - Dyspnoea [None]

NARRATIVE: CASE EVENT DATE: 20211001
